FAERS Safety Report 9362904 (Version 4)
Quarter: 2013Q3

REPORT INFORMATION
  Report Type: Spontaneous
  Country: US (occurrence: US)
  Receive Date: 20130624
  Receipt Date: 20130711
  Transmission Date: 20140515
  Serious: Yes (Other)
  Sender: FDA-Public Use
  Company Number: US-RB-055367-13

PATIENT
  Age: 56 Year
  Sex: Female

DRUGS (4)
  1. MUCINEX DM MAXIMUM STRENGTH [Suspect]
     Indication: RESPIRATORY TRACT CONGESTION
     Route: 048
     Dates: start: 20130610
  2. MUCINEX DM MAXIMUM STRENGTH [Suspect]
     Indication: INCREASED UPPER AIRWAY SECRETION
     Route: 048
     Dates: start: 20130610
  3. LEVAQUIN [Concomitant]
     Indication: RESPIRATORY TRACT CONGESTION
     Dosage: TOOK 2 DOSES
  4. LEVAQUIN [Concomitant]
     Indication: INCREASED UPPER AIRWAY SECRETION
     Dosage: TOOK 2 DOSES

REACTIONS (6)
  - Hypertension [Recovered/Resolved]
  - Palpitations [Recovered/Resolved]
  - Feeling hot [Recovered/Resolved]
  - Flushing [Recovered/Resolved]
  - Feeling abnormal [Recovered/Resolved]
  - Incorrect drug administration duration [Recovered/Resolved]
